FAERS Safety Report 6943671-8 (Version None)
Quarter: 2010Q3

REPORT INFORMATION
  Report Type: 
  Country: None (occurrence: None)
  Receive Date: 20100826
  Receipt Date: 20100817
  Transmission Date: 20110219
  Serious: Yes (Hospitalization, Other)
  Sender: FDA-Public Use
  Company Number: CH-GILEAD-2010-0031132

PATIENT
  Sex: Male

DRUGS (3)
  1. VIREAD [Suspect]
     Indication: HIV INFECTION
  2. ZIAGEN [Concomitant]
     Indication: HIV INFECTION
  3. KALETRA [Concomitant]
     Indication: HIV INFECTION

REACTIONS (4)
  - HYPOPHOSPHATAEMIA [None]
  - LUMBAR VERTEBRAL FRACTURE [None]
  - OSTEOMALACIA [None]
  - RIB FRACTURE [None]
